FAERS Safety Report 13510133 (Version 2)
Quarter: 2017Q2

REPORT INFORMATION
  Report Type: Spontaneous
  Country: FR (occurrence: FR)
  Receive Date: 20170503
  Receipt Date: 20170523
  Transmission Date: 20170830
  Serious: Yes (Death, Life-Threatening, Hospitalization)
  Sender: FDA-Public Use
  Company Number: FR-TEVA-763286ROM

PATIENT
  Age: 70 Year
  Sex: Male

DRUGS (3)
  1. CISPLATINE TEVA 1 MG/1 ML [Suspect]
     Active Substance: CISPLATIN
     Indication: SQUAMOUS CELL CARCINOMA
     Dosage: TCF PROTOCOL (TAXOTERE, CISPLATINE AND 5-FLUOROURACILE)
     Route: 041
     Dates: start: 20170124, end: 20170214
  2. DOCETAXEL HOSPIRA 10 MG/ML [Suspect]
     Active Substance: DOCETAXEL
     Indication: SQUAMOUS CELL CARCINOMA
     Route: 041
     Dates: start: 20170124, end: 20170214
  3. FLUOROURACIL TEVA [Suspect]
     Active Substance: FLUOROURACIL
     Indication: SQUAMOUS CELL CARCINOMA
     Dosage: TCF PROTOCOL (TAXOTERE, CISPLATINE AND 5-FLUOROURACILE)
     Route: 041
     Dates: start: 20170124, end: 20170219

REACTIONS (8)
  - Acute respiratory distress syndrome [Fatal]
  - Agranulocytosis [Fatal]
  - Nausea [Not Recovered/Not Resolved]
  - Diarrhoea [Fatal]
  - Pneumonia aspiration [Fatal]
  - Septic shock [Fatal]
  - Vomiting [Not Recovered/Not Resolved]
  - Clostridium difficile colitis [Fatal]

NARRATIVE: CASE EVENT DATE: 20170124
